FAERS Safety Report 9155486 (Version 1)
Quarter: 2013Q1

REPORT INFORMATION
  Report Type: Report from Study
  Country: DE (occurrence: DE)
  Receive Date: 20130311
  Receipt Date: 20130311
  Transmission Date: 20140127
  Serious: Yes (Hospitalization, Other)
  Sender: FDA-Public Use
  Company Number: DE-UCBSA-080221

PATIENT
  Age: 17 Year
  Sex: Female

DRUGS (5)
  1. VIMPAT [Suspect]
     Indication: PARTIAL SEIZURES
     Dosage: TOTAL DAILY DOSE: 100 MG/DAY
     Dates: start: 20100804, end: 2010
  2. VIMPAT [Suspect]
     Indication: PARTIAL SEIZURES
     Dosage: TOTAL DAILY DOSE: 200 MG/DAY
     Dates: start: 2010
  3. VIMPAT [Suspect]
     Indication: PARTIAL SEIZURES
     Dosage: TOATAL DAILY DOSE: 300 MG
  4. TOPIRAMATE [Concomitant]
     Dosage: TOTAL DAILY DOSE: 300 MG
  5. TOPIRAMATE [Concomitant]
     Dosage: REDUCED DOSE : 250 MG/DAY

REACTIONS (1)
  - Epilepsy [Unknown]
